FAERS Safety Report 17748267 (Version 1)
Quarter: 2020Q2

REPORT INFORMATION
  Report Type: Spontaneous
  Country: US (occurrence: US)
  Receive Date: 20200505
  Receipt Date: 20200505
  Transmission Date: 20200714
  Serious: Yes (Other)
  Sender: FDA-Public Use
  Company Number: US-NAPPMUNDI-USA-2020-0152474

PATIENT

DRUGS (1)
  1. OXYCODONE HYDROCHLORIDE (SIMILAR TO NDA 22-272) [Suspect]
     Active Substance: OXYCODONE HYDROCHLORIDE
     Indication: POST LAMINECTOMY SYNDROME
     Dosage: 10 MG, TID
     Route: 048
     Dates: start: 201509, end: 2019

REACTIONS (3)
  - Spinal fracture [Unknown]
  - Back pain [Unknown]
  - Intervertebral disc operation [Unknown]

NARRATIVE: CASE EVENT DATE: 20160708
